FAERS Safety Report 7767679-8 (Version None)
Quarter: 2011Q3

REPORT INFORMATION
  Report Type: 
  Country: None (occurrence: None)
  Receive Date: 20110922
  Receipt Date: 20110920
  Transmission Date: 20111222
  Serious: Yes (Other)
  Sender: FDA-Public Use
  Company Number: DE-PFIZER INC-2011223780

PATIENT
  Age: 29 Year
  Sex: Female
  Weight: 66.5 kg

DRUGS (5)
  1. THYRONAJOD [Concomitant]
     Indication: HYPOTHYROIDISM
     Dosage: 25 UG, 2X/DAY
     Dates: start: 20100327
  2. FOL 400 [Concomitant]
     Indication: PROPHYLAXIS OF NEURAL TUBE DEFECT
     Dosage: 0.4 MG, 1X/DAY
     Route: 048
     Dates: start: 20100327, end: 20100903
  3. PROMETHAZINE [Suspect]
     Indication: DEPRESSION
     Dosage: 30 MG, 2X/DAY
     Route: 048
     Dates: start: 20100327
  4. THYRONAJOD [Concomitant]
     Dosage: 150UG DAILY
     Route: 048
  5. SERTRALINE HYDROCHLORIDE [Suspect]
     Indication: DEPRESSION
     Dosage: 150 MG, DAILY
     Route: 048
     Dates: start: 20100512

REACTIONS (1)
  - PLACENTA PRAEVIA HAEMORRHAGE [None]
